FAERS Safety Report 18907696 (Version 1)
Quarter: 2021Q1

REPORT INFORMATION
  Report Type: Spontaneous
  Country: CZ (occurrence: CZ)
  Receive Date: 20210218
  Receipt Date: 20210218
  Transmission Date: 20210420
  Serious: Yes (Other)
  Sender: FDA-Public Use
  Company Number: CZ-SUN PHARMACEUTICAL INDUSTRIES LTD-2021RR-281636

PATIENT
  Age: 77 Year
  Sex: Male

DRUGS (2)
  1. DUTASTERID [Suspect]
     Active Substance: DUTASTERIDE
     Indication: BENIGN PROSTATIC HYPERPLASIA
     Dosage: ()
     Route: 065
     Dates: end: 202011
  2. TAMSULOSIN [Suspect]
     Active Substance: TAMSULOSIN
     Indication: BENIGN PROSTATIC HYPERPLASIA
     Dosage: ()
     Route: 065

REACTIONS (5)
  - Dyspnoea [Unknown]
  - Asthenia [Unknown]
  - Anal incontinence [Unknown]
  - Memory impairment [Not Recovered/Not Resolved]
  - Altered state of consciousness [Recovered/Resolved]
